FAERS Safety Report 9885143 (Version 2)
Quarter: 2014Q1

REPORT INFORMATION
  Report Type: Spontaneous
  Country: TR (occurrence: TR)
  Receive Date: 20140210
  Receipt Date: 20140210
  Transmission Date: 20141002
  Serious: Yes (Other)
  Sender: FDA-Public Use
  Company Number: TR-BAYER-2013-157772

PATIENT
  Sex: Male
  Weight: 86 kg

DRUGS (4)
  1. CORASPIN [Suspect]
     Dosage: 100 MG, UNK
  2. BELOC [Suspect]
     Dosage: 50 MG, UNK
     Dates: start: 20120101
  3. STATIN [Concomitant]
     Indication: HYPERLIPIDAEMIA
  4. ECOPIRIN [Concomitant]
     Dosage: 100 MG, QD

REACTIONS (3)
  - Gastric haemorrhage [None]
  - Facial bones fracture [None]
  - Hypersensitivity [None]
